FAERS Safety Report 9700573 (Version 2)
Quarter: 2013Q4

REPORT INFORMATION
  Report Type: Report from Study
  Country: US (occurrence: US)
  Receive Date: 20131121
  Receipt Date: 20131209
  Transmission Date: 20140711
  Serious: Yes (Hospitalization)
  Sender: FDA-Public Use
  Company Number: PHEH2013US023989

PATIENT
  Sex: Male

DRUGS (1)
  1. CLOZARIL [Suspect]
     Dosage: UNK
     Route: 048

REACTIONS (4)
  - Infection [Unknown]
  - Urinary tract infection [Unknown]
  - White blood cell count increased [Recovered/Resolved]
  - Neutrophil count increased [Unknown]
